FAERS Safety Report 9816908 (Version 1)
Quarter: 2014Q1

REPORT INFORMATION
  Report Type: Spontaneous
  Country: US (occurrence: US)
  Receive Date: 20140114
  Receipt Date: 20140114
  Transmission Date: 20141002
  Serious: No
  Sender: FDA-Public Use
  Company Number: US-ENDO PHARMACEUTICALS INC.-PERC20130063

PATIENT
  Sex: Female
  Weight: 61.29 kg

DRUGS (7)
  1. PERCOCET [Suspect]
     Indication: PAIN
     Dosage: 22.5/975 MG
     Route: 048
  2. LYRICA [Suspect]
     Indication: PAIN
     Route: 048
     Dates: start: 2007
  3. NORVASC [Concomitant]
     Indication: BLOOD PRESSURE ABNORMAL
     Route: 048
  4. TOPROL [Concomitant]
     Indication: BLOOD PRESSURE ABNORMAL
     Route: 048
  5. CYMBALTA [Concomitant]
     Indication: ANXIETY
     Route: 048
  6. MEGACE ES [Concomitant]
     Indication: PRODUCT USED FOR UNKNOWN INDICATION
     Dosage: 625MG/5ML
     Route: 048
  7. WARFARIN [Concomitant]
     Indication: THROMBOSIS
     Route: 048

REACTIONS (1)
  - Drug ineffective [Recovered/Resolved]
